FAERS Safety Report 7545543-7 (Version None)
Quarter: 2011Q2

REPORT INFORMATION
  Report Type: 
  Country: None (occurrence: None)
  Receive Date: 20110614
  Receipt Date: 20110603
  Transmission Date: 20111010
  Serious: Yes (Other)
  Sender: FDA-Public Use
  Company Number: ZA-JNJFOC-20110603427

PATIENT
  Age: 3 Decade

DRUGS (5)
  1. AMIKACIN [Suspect]
     Indication: TUBERCULOSIS
     Route: 065
  2. OFLOXACIN [Suspect]
     Indication: TUBERCULOSIS
     Route: 065
  3. CYCLOSERINE [Suspect]
     Indication: TUBERCULOSIS
     Route: 065
  4. PYRAZINAMIDE [Suspect]
     Indication: TUBERCULOSIS
     Route: 065
  5. ETHIONAMIDE [Suspect]
     Indication: TUBERCULOSIS
     Route: 065

REACTIONS (2)
  - PAIN [None]
  - DEAFNESS [None]
